FAERS Safety Report 5646849-9 (Version None)
Quarter: 2008Q1

REPORT INFORMATION
  Report Type: 
  Country: None (occurrence: None)
  Receive Date: 20080228
  Receipt Date: 20080218
  Transmission Date: 20080703
  Serious: Yes (Death, Hospitalization)
  Sender: FDA-Public Use
  Company Number: AZAIT200800048

PATIENT
  Age: 80 Year
  Sex: Male
  Weight: 97 kg

DRUGS (2)
  1. VIDAZA [Suspect]
     Indication: MYELODYSPLASTIC SYNDROME
     Dosage: (150 MG, DAILY X 7 DAYS), SUBCUTANEOUS
     Route: 058
     Dates: start: 20071217, end: 20071223
  2. DEPAKIN (VALPROATE SODIUM) [Suspect]
     Indication: MYELODYSPLASTIC SYNDROME
     Dosage: (DAILY), ORAL
     Route: 048
     Dates: start: 20070716, end: 20071212

REACTIONS (2)
  - RENAL FAILURE [None]
  - SEPSIS [None]
